FAERS Safety Report 4286294-4 (Version None)
Quarter: 2004Q1

REPORT INFORMATION
  Report Type: 
  Country: None (occurrence: None)
  Receive Date: 20040129
  Receipt Date: 20030226
  Transmission Date: 20041129
  Serious: Yes (Hospitalization)
  Sender: FDA-Public Use
  Company Number: A001-002-005522

PATIENT
  Age: 83 Year
  Sex: Male

DRUGS (6)
  1. ARICEPT [Suspect]
     Indication: DEMENTIA
     Dosage: 10 MG, 1 IN 1 D, PER ORAL
     Route: 048
     Dates: start: 19990101
  2. FERROUS SULFATE TAB [Suspect]
     Dosage: 975 MG, 3 IN 1 D
     Dates: end: 20021101
  3. WELLBUTRIN [Concomitant]
  4. LANOXIN [Concomitant]
  5. ASPIRIN [Concomitant]
  6. SINEMET [Concomitant]

REACTIONS (7)
  - BODY HEIGHT DECREASED [None]
  - FALL [None]
  - INSOMNIA [None]
  - MENTAL IMPAIRMENT [None]
  - MULTIPLE FRACTURES [None]
  - PNEUMONIA [None]
  - RED BLOOD CELL COUNT INCREASED [None]
